FAERS Safety Report 9887856 (Version 2)
Quarter: 2016Q4

REPORT INFORMATION
  Report Type: Spontaneous
  Country: JP (occurrence: JP)
  Receive Date: 20140211
  Receipt Date: 20161118
  Transmission Date: 20170207
  Serious: Yes (Hospitalization, Other)
  Sender: FDA-Public Use
  Company Number: JP-ROCHE-1344659

PATIENT
  Age: 69 Year
  Sex: Female
  Weight: 46.5 kg

DRUGS (2)
  1. METHYLPREDNISOLONE. [Concomitant]
     Active Substance: METHYLPREDNISOLONE
     Route: 065
  2. TOCILIZUMAB [Suspect]
     Active Substance: TOCILIZUMAB
     Indication: RHEUMATOID ARTHRITIS
     Route: 065

REACTIONS (5)
  - Sepsis [Recovering/Resolving]
  - Spondylitis [Recovering/Resolving]
  - Pleurisy [Recovering/Resolving]
  - Spinal cord compression [Recovering/Resolving]
  - Pneumonia [Recovering/Resolving]
